FAERS Safety Report 17507290 (Version 1)
Quarter: 2020Q1

REPORT INFORMATION
  Report Type: Spontaneous
  Country: GB (occurrence: GB)
  Receive Date: 20200306
  Receipt Date: 20200306
  Transmission Date: 20200409
  Serious: Yes (Other)
  Sender: FDA-Public Use
  Company Number: GB-TEVA-2019-GB-1097940

PATIENT
  Age: 53 Year
  Sex: Female

DRUGS (1)
  1. METHOTREXATE. [Suspect]
     Active Substance: METHOTREXATE
     Indication: SPONDYLOARTHROPATHY
     Dosage: INCORRECT DOSE TAKEN:10 MILLIGRAM
     Route: 065

REACTIONS (4)
  - Lower respiratory tract infection [Recovered/Resolved]
  - Inappropriate schedule of product administration [Unknown]
  - Chest pain [Recovered/Resolved]
  - Mucosal inflammation [Recovered/Resolved]

NARRATIVE: CASE EVENT DATE: 20181231
